FAERS Safety Report 16701972 (Version 3)
Quarter: 2019Q3

REPORT INFORMATION
  Report Type: Spontaneous
  Country: CN (occurrence: CN)
  Receive Date: 20190814
  Receipt Date: 20190821
  Transmission Date: 20191004
  Serious: Yes (Hospitalization)
  Sender: FDA-Public Use
  Company Number: CN-BAYER-2019-146666

PATIENT
  Age: 66 Year
  Sex: Male

DRUGS (4)
  1. LINEZOLID. [Concomitant]
     Active Substance: LINEZOLID
     Indication: INFECTION
     Dosage: 0.6 G, BID
     Route: 041
     Dates: start: 20181010, end: 20181015
  2. MEROPENEM. [Concomitant]
     Active Substance: MEROPENEM
     Indication: INFECTION
     Dosage: 1 G, QID
     Route: 041
     Dates: start: 20181010, end: 20181105
  3. AZITHROMYCIN ANHYDROUS. [Concomitant]
     Active Substance: AZITHROMYCIN ANHYDROUS
     Indication: PNEUMONIA LEGIONELLA
     Dosage: 0.5 G, QD
     Route: 041
     Dates: start: 20181015, end: 20181105
  4. AVELOX [Suspect]
     Active Substance: MOXIFLOXACIN HYDROCHLORIDE
     Dosage: 0.4 G, QD
     Route: 041
     Dates: start: 20181010, end: 20181105

REACTIONS (3)
  - Dysphoria [Recovered/Resolved]
  - Pulmonary mass [Recovered/Resolved]
  - Dyspnoea [Recovered/Resolved]

NARRATIVE: CASE EVENT DATE: 20181031
